FAERS Safety Report 7815470-6 (Version None)
Quarter: 2011Q4

REPORT INFORMATION
  Report Type: 
  Country: None (occurrence: None)
  Receive Date: 20111014
  Receipt Date: 20111012
  Transmission Date: 20120403
  Serious: Yes (Death, Other)
  Sender: FDA-Public Use
  Company Number: PHHY2011AU90289

PATIENT
  Age: 64 Year
  Sex: Male

DRUGS (1)
  1. GLEEVEC [Suspect]
     Indication: CHRONIC MYELOID LEUKAEMIA
     Dosage: UNK
     Route: 048

REACTIONS (6)
  - IMMUNOSUPPRESSION [None]
  - RESPIRATORY DISTRESS [None]
  - CHRONIC MYELOID LEUKAEMIA [None]
  - GENE MUTATION IDENTIFICATION TEST POSITIVE [None]
  - PNEUMONIA [None]
  - THERAPEUTIC RESPONSE DECREASED [None]
